FAERS Safety Report 11980981 (Version 5)
Quarter: 2016Q3

REPORT INFORMATION
  Report Type: Report from Study
  Country: CA (occurrence: CA)
  Receive Date: 20160129
  Receipt Date: 20160830
  Transmission Date: 20161109
  Serious: Yes (Other)
  Sender: FDA-Public Use
  Company Number: PHHY2014CA139445

PATIENT
  Age: 60 Year
  Sex: Female

DRUGS (6)
  1. XOLAIR [Suspect]
     Active Substance: OMALIZUMAB
     Dosage: UNK
     Route: 058
     Dates: start: 20160601, end: 20160601
  2. VENTOLIN [Concomitant]
     Active Substance: ALBUTEROL SULFATE
     Indication: DYSPNOEA
     Dosage: 2-3 TIMES A WEEK
     Route: 065
  3. XOLAIR [Suspect]
     Active Substance: OMALIZUMAB
     Indication: ASTHMA
     Dosage: 225 MG, BIW
     Route: 058
     Dates: start: 20150818
  4. ALVESCO [Concomitant]
     Active Substance: CICLESONIDE
     Indication: PRODUCT USED FOR UNKNOWN INDICATION
     Route: 065
  5. SYMBICORT [Concomitant]
     Active Substance: BUDESONIDE\FORMOTEROL FUMARATE DIHYDRATE
     Indication: PRODUCT USED FOR UNKNOWN INDICATION
     Route: 065
  6. SEEBRI BREEZHALER [Suspect]
     Active Substance: GLYCOPYRROLATE
     Indication: ASTHMA
     Dosage: 50 UG, BID
     Route: 055
     Dates: start: 2014

REACTIONS (25)
  - Nasal obstruction [Unknown]
  - Drug ineffective [Unknown]
  - Oral pruritus [Unknown]
  - Chest discomfort [Unknown]
  - Hypersensitivity [Unknown]
  - Anaphylactic reaction [Unknown]
  - Throat tightness [Unknown]
  - Lacrimation increased [Unknown]
  - Upper-airway cough syndrome [Unknown]
  - Ageusia [Unknown]
  - Cough [Unknown]
  - Off label use [Unknown]
  - Forced expiratory volume decreased [Recovering/Resolving]
  - Anosmia [Unknown]
  - Rhinorrhoea [Unknown]
  - Drug ineffective for unapproved indication [Unknown]
  - Eye pruritus [Unknown]
  - Vital capacity decreased [Unknown]
  - Sneezing [Unknown]
  - Middle insomnia [Unknown]
  - Hypoventilation [Unknown]
  - Dyspnoea [Unknown]
  - Asthma [Unknown]
  - Obstructive airways disorder [Unknown]
  - Wheezing [Unknown]

NARRATIVE: CASE EVENT DATE: 20150929
